FAERS Safety Report 5039443-4 (Version None)
Quarter: 2006Q2

REPORT INFORMATION
  Report Type: 
  Country: None (occurrence: None)
  Receive Date: 20060623
  Receipt Date: 20060607
  Transmission Date: 20061013
  Serious: Yes (Other)
  Sender: FDA-Public Use
  Company Number: US200602003878

PATIENT
  Age: 70 Year
  Sex: Female
  Weight: 57.6 kg

DRUGS (3)
  1. ALIMTA [Suspect]
     Indication: NON-SMALL CELL LUNG CANCER STAGE IV
     Dates: start: 20051116, end: 20060201
  2. CYANOCOBALAMIN [Concomitant]
  3. FOLIC ACID [Concomitant]

REACTIONS (9)
  - BUTTOCK PAIN [None]
  - DEPRESSION [None]
  - DYSPHORIA [None]
  - FATIGUE [None]
  - MALIGNANT NEOPLASM PROGRESSION [None]
  - NAUSEA [None]
  - NON-SMALL CELL LUNG CANCER METASTATIC [None]
  - SPINAL DISORDER [None]
  - TREMOR [None]
